FAERS Safety Report 21954539 (Version 2)
Quarter: 2023Q1

REPORT INFORMATION
  Report Type: Spontaneous
  Country: IT (occurrence: IT)
  Receive Date: 20230205
  Receipt Date: 20230302
  Transmission Date: 20230417
  Serious: Yes (Other)
  Sender: FDA-Public Use
  Company Number: IT-MLMSERVICE-20230113-4037680-1

PATIENT
  Age: 60 Year
  Sex: Male

DRUGS (2)
  1. PEMETREXED [Suspect]
     Active Substance: PEMETREXED
     Indication: Pleural mesothelioma
     Dosage: 500 MILLIGRAM, EVERY 3 WEEKS
     Route: 042
  2. CISPLATIN [Suspect]
     Active Substance: CISPLATIN
     Indication: Pleural mesothelioma
     Dosage: 75 MILLIGRAM/SQ. METER, EVERY 3 WEEKS
     Route: 042

REACTIONS (2)
  - Haematotoxicity [Recovered/Resolved]
  - Deep vein thrombosis [Recovered/Resolved]
